FAERS Safety Report 24652364 (Version 1)
Quarter: 2024Q4

REPORT INFORMATION
  Report Type: Spontaneous
  Country: US (occurrence: None)
  Receive Date: 20241121
  Receipt Date: 20241121
  Transmission Date: 20250115
  Serious: Yes (Hospitalization)
  Sender: Public
  Company Number: None

PATIENT
  Sex: Male

DRUGS (4)
  1. TADALAFIL [Suspect]
     Active Substance: TADALAFIL
     Indication: Pulmonary arterial hypertension
     Dosage: 40MG ONCE DILY PO
     Route: 048
     Dates: start: 202406
  2. REMODULIN [Suspect]
     Active Substance: TREPROSTINIL
  3. WINREVAIR [Suspect]
     Active Substance: SOTATERCEPT-CSRK
  4. OPSUMIT [Concomitant]
     Active Substance: MACITENTAN

REACTIONS (6)
  - Bradycardia [None]
  - Dyspnoea [None]
  - Fatigue [None]
  - Dizziness [None]
  - Anxiety [None]
  - Therapy interrupted [None]

NARRATIVE: CASE EVENT DATE: 20241114
